FAERS Safety Report 20304222 (Version 2)
Quarter: 2022Q1

REPORT INFORMATION
  Report Type: Spontaneous
  Country: US (occurrence: US)
  Receive Date: 20220106
  Receipt Date: 20220205
  Transmission Date: 20220423
  Serious: No
  Sender: FDA-Public Use
  Company Number: US-GSKCCFUS-Case-01254525_AE-73452

PATIENT
  Sex: Male

DRUGS (1)
  1. FLOVENT HFA [Suspect]
     Active Substance: FLUTICASONE PROPIONATE
     Indication: Product used for unknown indication
     Dosage: 44 UG, BID,44MCG
     Route: 055
     Dates: start: 1996

REACTIONS (2)
  - Wrong technique in device usage process [Recovered/Resolved]
  - Product complaint [Unknown]
